FAERS Safety Report 8069082-2 (Version None)
Quarter: 2012Q1

REPORT INFORMATION
  Report Type: 
  Country: None (occurrence: None)
  Receive Date: 20120125
  Receipt Date: 20120119
  Transmission Date: 20120608
  Serious: Yes (Other)
  Sender: FDA-Public Use
  Company Number: PHHY2011ES109369

PATIENT
  Age: 61 Year
  Sex: Male

DRUGS (3)
  1. PRAMIPEXOLE DIHYCHLLORIDE [Suspect]
     Dosage: 25 MG, PER DAY
  2. GABAPENTIN [Concomitant]
     Dosage: 900 MG, UNK
  3. CARBIDOPA + LEVODOPA [Suspect]
     Indication: PARKINSON'S DISEASE
     Dosage: 300/150 PER DAY

REACTIONS (7)
  - IRRITABILITY [None]
  - JEALOUS DELUSION [None]
  - TOXICITY TO VARIOUS AGENTS [None]
  - SUICIDE ATTEMPT [None]
  - HYPERSEXUALITY [None]
  - CONVULSION [None]
  - IMPULSE-CONTROL DISORDER [None]
